FAERS Safety Report 6880543-1 (Version None)
Quarter: 2010Q3

REPORT INFORMATION
  Report Type: 
  Country: None (occurrence: None)
  Receive Date: 20100728
  Receipt Date: 20100720
  Transmission Date: 20110219
  Serious: Yes (Hospitalization)
  Sender: FDA-Public Use
  Company Number: US-GENZYME-FABR-1001396

PATIENT

DRUGS (6)
  1. FABRAZYME [Suspect]
     Indication: FABRY'S DISEASE
     Dosage: 90 MG, Q2W
     Route: 042
     Dates: start: 20030729, end: 20080801
  2. FABRAZYME [Suspect]
     Dosage: UNK
     Route: 042
     Dates: start: 20030701, end: 20051001
  3. FABRAZYME [Suspect]
     Dosage: UNK
     Route: 042
     Dates: start: 20080601, end: 20090701
  4. FABRAZYME [Suspect]
     Dosage: UNK
     Route: 042
     Dates: start: 20060517, end: 20070601
  5. PERITONEAL DIALYTICS [Concomitant]
     Indication: RENAL FAILURE CHRONIC
     Dosage: UNK
     Dates: end: 20100510
  6. HAEMODIALYTICS AND HAEMOFILTRATES [Concomitant]
     Indication: RENAL FAILURE CHRONIC
     Dosage: UNK
     Route: 010
     Dates: start: 20100510

REACTIONS (6)
  - ABDOMINAL PAIN [None]
  - AZOTAEMIA [None]
  - DEVICE RELATED INFECTION [None]
  - ERYTHEMA [None]
  - PYREXIA [None]
  - TENDERNESS [None]
